FAERS Safety Report 23762915 (Version 1)
Quarter: 2024Q2

REPORT INFORMATION
  Report Type: Spontaneous
  Country: US (occurrence: None)
  Receive Date: 20240419
  Receipt Date: 20240419
  Transmission Date: 20240715
  Serious: Yes (unspecified)
  Sender: FDA-Public Use
  Company Number: None

PATIENT
  Age: 43 Year
  Sex: Male
  Weight: 70.58 kg

DRUGS (8)
  1. OXALIPLATIN [Suspect]
     Active Substance: OXALIPLATIN
     Dosage: 165 MG 82.5 MG/H INTRAVENOUS?
     Route: 042
  2. dexamethasone injection 10 mg [Concomitant]
  3. diphenhydramine injection 25 mg [Concomitant]
  4. famotidine injection 20 mg [Concomitant]
  5. fluorouracil 800 mg IV [Concomitant]
  6. leucovorin 800 mg IV [Concomitant]
  7. palonosetron injection 0.25 mg [Concomitant]
  8. sodium chloride 0.9% bolus 500 mL [Concomitant]

REACTIONS (5)
  - Hypotension [None]
  - Flushing [None]
  - Dizziness [None]
  - Feeling hot [None]
  - Infusion related reaction [None]

NARRATIVE: CASE EVENT DATE: 20240410
